FAERS Safety Report 7267982-4 (Version None)
Quarter: 2011Q1

REPORT INFORMATION
  Report Type: 
  Country: None (occurrence: None)
  Receive Date: 20110201
  Receipt Date: 20110119
  Transmission Date: 20110831
  Serious: Yes (Hospitalization)
  Sender: FDA-Public Use
  Company Number: US-WATSON-2011-00566

PATIENT
  Sex: Female
  Weight: 72.6 kg

DRUGS (2)
  1. NECON 1/35-28 (WATSON LABORATORIES) [Suspect]
     Indication: CONTRACEPTION
     Dosage: 1 TAB PER DAY
     Route: 048
     Dates: start: 20090501, end: 20090720
  2. CITALOPRAM [Concomitant]
     Indication: POST-TRAUMATIC STRESS DISORDER
     Dosage: 40 MG, DAILY
     Route: 048
     Dates: start: 20030101

REACTIONS (8)
  - PULMONARY EMBOLISM [None]
  - TOTAL LUNG CAPACITY DECREASED [None]
  - DYSPNOEA [None]
  - CHEST PAIN [None]
  - PAIN [None]
  - ATRIAL THROMBOSIS [None]
  - CONTUSION [None]
  - CRYING [None]
